FAERS Safety Report 25552419 (Version 2)
Quarter: 2025Q3

REPORT INFORMATION
  Report Type: Spontaneous
  Country: US (occurrence: US)
  Receive Date: 20250715
  Receipt Date: 20250724
  Transmission Date: 20251021
  Serious: Yes (Disabling, Other)
  Sender: NOVO NORDISK
  Company Number: US-NOVOPROD-1474967

PATIENT
  Age: 34 Year
  Sex: Male

DRUGS (3)
  1. NOVOLOG [Suspect]
     Active Substance: INSULIN ASPART
     Indication: Type 1 diabetes mellitus
     Dosage: 40 IU, QD
     Route: 058
     Dates: start: 2007
  2. NOVOLOG [Suspect]
     Active Substance: INSULIN ASPART
     Dosage: 42 IU, QD(DOSE INCREASED)
     Route: 058
     Dates: start: 2007
  3. LEVEMIR [Suspect]
     Active Substance: INSULIN DETEMIR
     Indication: Type 1 diabetes mellitus
     Route: 058
     Dates: start: 2007, end: 202504

REACTIONS (9)
  - Blood glucose decreased [Recovered/Resolved]
  - Blood glucose decreased [Recovered/Resolved]
  - Unresponsive to stimuli [Recovered/Resolved]
  - Chronic kidney disease [Unknown]
  - Type 1 diabetes mellitus [Unknown]
  - Vomiting [Unknown]
  - Blood glucose decreased [Recovered/Resolved]
  - Blood glucose fluctuation [Unknown]
  - Blood glucose increased [Not Recovered/Not Resolved]

NARRATIVE: CASE EVENT DATE: 20070101
